FAERS Safety Report 26194930 (Version 1)
Quarter: 2025Q4

REPORT INFORMATION
  Report Type: Report from Study
  Country: IL (occurrence: IL)
  Receive Date: 20251224
  Receipt Date: 20251224
  Transmission Date: 20260117
  Serious: Yes (Hospitalization, Other)
  Sender: ABBVIE
  Company Number: IL-ABBVIE-6434169

PATIENT
  Age: 65 Year
  Sex: Female

DRUGS (1)
  1. SKYRIZI [Suspect]
     Active Substance: RISANKIZUMAB-RZAA
     Indication: Crohn^s disease
     Dosage: DOSAGE FORM: OBI
     Route: 058
     Dates: start: 20250714

REACTIONS (9)
  - Anorectal disorder [Recovering/Resolving]
  - Diarrhoea [Not Recovered/Not Resolved]
  - Constipation [Unknown]
  - Drug ineffective [Not Recovered/Not Resolved]
  - Abdominal pain [Unknown]
  - Anal incontinence [Unknown]
  - Procedural pain [Unknown]
  - Dyschezia [Unknown]
  - Anorectal disorder [Recovering/Resolving]

NARRATIVE: CASE EVENT DATE: 20250101
